FAERS Safety Report 9442915 (Version 1)
Quarter: 2013Q3

REPORT INFORMATION
  Report Type: Spontaneous
  Country: US (occurrence: None)
  Receive Date: 20130805
  Receipt Date: 20130805
  Transmission Date: 20140515
  Serious: Yes (Other)
  Sender: FDA-Public Use
  Company Number: None

PATIENT
  Age: 41 Year
  Sex: Female
  Weight: 48.08 kg

DRUGS (1)
  1. AVELOX [Suspect]

REACTIONS (6)
  - Abasia [None]
  - Tendon pain [None]
  - Arthralgia [None]
  - Myalgia [None]
  - Quality of life decreased [None]
  - Anhedonia [None]
